FAERS Safety Report 7198237-4 (Version None)
Quarter: 2010Q4

REPORT INFORMATION
  Report Type: 
  Country: None (occurrence: None)
  Receive Date: 20101223
  Receipt Date: 20101223
  Transmission Date: 20110411
  Serious: No
  Sender: FDA-Public Use
  Company Number: None

PATIENT
  Sex: Female
  Weight: 86.1834 kg

DRUGS (1)
  1. LEVAQUIN [Suspect]
     Indication: SINUSITIS
     Dosage: TAKE ONE DAILY WITH PLENTY OF DAILY FOR 5 DAYS PO
     Route: 048
     Dates: start: 20101218, end: 20101222

REACTIONS (1)
  - URTICARIA [None]
